FAERS Safety Report 10959785 (Version 1)
Quarter: 2015Q1

REPORT INFORMATION
  Report Type: Spontaneous
  Country: US (occurrence: None)
  Receive Date: 20150325
  Receipt Date: 20150325
  Transmission Date: 20150721
  Serious: Yes (Hospitalization)
  Sender: FDA-Public Use
  Company Number: 1224850-2015-00015

PATIENT
  Age: 50 Year
  Sex: Male
  Weight: 94.5 kg

DRUGS (15)
  1. LIBERTY CYCLER SET [Concomitant]
  2. OPTHALMALIC OINTMENT [Concomitant]
  3. CHLORTHALIDE [Concomitant]
  4. COZAAR [Concomitant]
     Active Substance: LOSARTAN POTASSIUM
  5. LIBERTY CYCLER [Concomitant]
     Active Substance: DEVICE
  6. CLONAZEPAM. [Concomitant]
     Active Substance: CLONAZEPAM
  7. GENTAMYCIN [Concomitant]
     Active Substance: GENTAMICIN
  8. ALLOPURINOL. [Concomitant]
     Active Substance: ALLOPURINOL
  9. SIMVASTATIN. [Concomitant]
     Active Substance: SIMVASTATIN
  10. NEURONTIN [Concomitant]
     Active Substance: GABAPENTIN
  11. PREDNISONE. [Concomitant]
     Active Substance: PREDNISONE
  12. FERROUS SULFATE [Concomitant]
     Active Substance: FERROUS SULFATE\FERROUS SULFATE, DRIED
  13. PHOSLO [Suspect]
     Active Substance: CALCIUM ACETATE
     Indication: CHRONIC KIDNEY DISEASE
     Dosage: 667 MG
     Dates: start: 20131025
  14. PLAVIX [Concomitant]
     Active Substance: CLOPIDOGREL BISULFATE
  15. RANITIDINE [Concomitant]
     Active Substance: RANITIDINE\RANITIDINE HYDROCHLORIDE

REACTIONS (1)
  - Peritonitis [None]

NARRATIVE: CASE EVENT DATE: 20131025
